FAERS Safety Report 9523030 (Version 1)
Quarter: 2013Q3

REPORT INFORMATION
  Report Type: Spontaneous
  Country: JP (occurrence: JP)
  Receive Date: 20130913
  Receipt Date: 20130913
  Transmission Date: 20140515
  Serious: Yes (Other)
  Sender: FDA-Public Use
  Company Number: JP-PFIZER INC-2013261931

PATIENT
  Age: 36 Year
  Sex: Female
  Weight: 36.3 kg

DRUGS (3)
  1. CORTRIL [Suspect]
     Indication: ADRENAL INSUFFICIENCY
     Dosage: 30 MG/DAY
     Route: 048
  2. CORTRIL [Suspect]
     Indication: DEAFNESS NEUROSENSORY
  3. PREDNISOLONE [Suspect]
     Indication: DEAFNESS NEUROSENSORY
     Dosage: UNK

REACTIONS (1)
  - Substance-induced psychotic disorder [Recovered/Resolved]
